FAERS Safety Report 7938144 (Version 2)
Quarter: 2013Q1

REPORT INFORMATION
  Report Type: Spontaneous
  Country: VE (occurrence: VE)
  Receive Date: 20110510
  Receipt Date: 20130125
  Transmission Date: 20140127
  Serious: Yes (Death, Hospitalization)
  Sender: FDA-Public Use
  Company Number: PHHY2011VE38323

PATIENT
  Sex: Male

DRUGS (2)
  1. DIOVAN [Suspect]
     Indication: HYPERTENSION
     Dosage: 80 MG, DAILY
     Route: 048
  2. DAFLON                             /01026201/ [Concomitant]
     Indication: CARDIOVASCULAR DISORDER
     Dosage: 500 MG, DAILY
     Route: 048

REACTIONS (4)
  - Pulmonary embolism [Fatal]
  - Lung disorder [Fatal]
  - Pancreatic carcinoma [Unknown]
  - Pneumonia [Unknown]
